FAERS Safety Report 8044263-2 (Version None)
Quarter: 2012Q1

REPORT INFORMATION
  Report Type: 
  Country: None (occurrence: None)
  Receive Date: 20120113
  Receipt Date: 20120111
  Transmission Date: 20120608
  Serious: Yes (Hospitalization, Other)
  Sender: FDA-Public Use
  Company Number: US-BAYER-2011-096384

PATIENT
  Age: 73 Year
  Sex: Male

DRUGS (8)
  1. NAPROXEN [Concomitant]
     Dosage: UNK
  2. PREDNISOLONE [Concomitant]
  3. VIGAMOX [Concomitant]
  4. NEXAVAR [Suspect]
     Dosage: 400 MG, BID
     Dates: start: 20110420, end: 20111115
  5. OXYCODONE HCL [Concomitant]
     Dosage: 5 G
  6. NEXAVAR [Suspect]
     Indication: HEPATIC NEOPLASM MALIGNANT
     Dosage: 400 MG, BID
     Dates: start: 20110420, end: 20111001
  7. NEVANAC [Concomitant]
  8. CIALIS [Concomitant]
     Dosage: 20 G

REACTIONS (5)
  - OEDEMA PERIPHERAL [None]
  - HEPATIC NEOPLASM MALIGNANT [None]
  - METASTASES TO LYMPH NODES [None]
  - PAIN [None]
  - ERYTHEMA [None]
